FAERS Safety Report 7845467-1 (Version None)
Quarter: 2011Q4

REPORT INFORMATION
  Report Type: 
  Country: None (occurrence: None)
  Receive Date: 20111025
  Receipt Date: 20111017
  Transmission Date: 20120403
  Serious: Yes (Hospitalization)
  Sender: FDA-Public Use
  Company Number: PHHO2011FR17106

PATIENT
  Sex: Female
  Weight: 51 kg

DRUGS (6)
  1. FRAGMIN [Concomitant]
     Indication: THROMBOSIS
     Dosage: UNK
     Route: 058
     Dates: start: 20110504
  2. ZOFRAN [Concomitant]
     Indication: VOMITING
     Dosage: UNK
     Route: 042
     Dates: start: 20110324
  3. METHOTREXATE [Suspect]
     Indication: METASTASES TO BONE
     Dosage: 18 G, UNK
     Route: 042
     Dates: start: 20110926, end: 20110926
  4. ZOLEDRONIC [Suspect]
     Indication: METASTASES TO BONE
     Dosage: 2.5 MG, UNK
     Route: 042
     Dates: start: 20110328, end: 20110923
  5. ETOPOSIDE [Concomitant]
     Indication: METASTASES TO BONE
     Dosage: 110 MG, UNK
     Dates: start: 20110414, end: 20110831
  6. IFOSFAMIDE [Concomitant]
     Indication: METASTASES TO BONE
     Dosage: 4360 MG, UNK
     Dates: start: 20110414, end: 20110831

REACTIONS (3)
  - ASCITES [None]
  - AFFECTIVE DISORDER [None]
  - LEUKOENCEPHALOPATHY [None]
